FAERS Safety Report 8501594-7 (Version None)
Quarter: 2012Q3

REPORT INFORMATION
  Report Type: 
  Country: None (occurrence: None)
  Receive Date: 20120710
  Receipt Date: 20120704
  Transmission Date: 20120928
  Serious: Yes (Death, Life-Threatening, Other)
  Sender: FDA-Public Use
  Company Number: CA-ROCHE-1084447

PATIENT
  Age: 54 Year
  Sex: Male

DRUGS (12)
  1. FLUCONAZOLE [Concomitant]
     Route: 048
  2. FUROSEMIDE [Concomitant]
     Route: 048
  3. NADOLOL [Concomitant]
     Route: 048
  4. CYCLOPHOSPHAMIDE [Suspect]
     Indication: PRODUCT USED FOR UNKNOWN INDICATION
     Route: 042
  5. VINCRISTINE SULFATE [Suspect]
     Indication: PRODUCT USED FOR UNKNOWN INDICATION
     Route: 042
  6. OMEPRAZOLE [Concomitant]
     Route: 048
  7. RITUXAN [Suspect]
     Indication: PRODUCT USED FOR UNKNOWN INDICATION
     Route: 042
  8. AMILORIDE HYDROCHLORIDE [Concomitant]
     Route: 048
  9. CIPROFLOXACIN [Concomitant]
     Route: 048
  10. DOXORUBICIN HYDROCHLORIDE [Suspect]
     Indication: PRODUCT USED FOR UNKNOWN INDICATION
     Route: 042
  11. ACYCLOVIR [Concomitant]
     Route: 048
  12. LACTULOSE [Concomitant]
     Route: 048

REACTIONS (8)
  - HERNIAL EVENTRATION [None]
  - LOSS OF CONSCIOUSNESS [None]
  - SEPTIC SHOCK [None]
  - RESPIRATORY DISTRESS [None]
  - HYPOTENSION [None]
  - NEUTROPENIA [None]
  - PERITONITIS BACTERIAL [None]
  - WHITE BLOOD CELL COUNT DECREASED [None]
